FAERS Safety Report 15812832 (Version 3)
Quarter: 2019Q2

REPORT INFORMATION
  Report Type: Report from Study
  Country: GR (occurrence: GR)
  Receive Date: 20190111
  Receipt Date: 20190404
  Transmission Date: 20190711
  Serious: Yes (Hospitalization, Other)
  Sender: FDA-Public Use
  Company Number: GR-SA-2019SA005830

PATIENT
  Age: 82 Year
  Sex: Male

DRUGS (11)
  1. FUROSEMIDE. [Suspect]
     Active Substance: FUROSEMIDE
     Dosage: UNK
     Route: 048
  2. LIPITOR [Concomitant]
     Active Substance: ATORVASTATIN CALCIUM
     Dosage: UNK UNK, UNK
  3. LEXOTANIL [Concomitant]
     Active Substance: BROMAZEPAM
     Dosage: 1/2 TABLET, QD EVERY EVENING
  4. INSULIN GLARGINE [Suspect]
     Active Substance: INSULIN GLARGINE
     Indication: DIABETES MELLITUS
     Dosage: 32 U, QD
     Route: 058
  5. TRAJENTA [Concomitant]
     Active Substance: LINAGLIPTIN
     Dosage: UNK UNK, UNK
  6. ZYLAPOUR [Concomitant]
     Dosage: UNK UNK, UNK
  7. ELIQUIS [Concomitant]
     Active Substance: APIXABAN
     Dosage: UNK UNK, UNK
  8. ZURCAZOL [Concomitant]
     Active Substance: PANTOPRAZOLE SODIUM
     Dosage: 1 TABLET, QD (EVERY MORNING)
  9. ARICEPT [Concomitant]
     Active Substance: DONEPEZIL HYDROCHLORIDE
     Dosage: UNK UNK, UNK
  10. LOPRESOR [METOPROLOL TARTRATE] [Concomitant]
     Dosage: UNK
  11. TAMSULIJN [Concomitant]
     Dosage: UNK UNK, UNK

REACTIONS (6)
  - Atrial fibrillation [Unknown]
  - Device use error [Unknown]
  - Product storage error [Unknown]
  - Drug ineffective [Unknown]
  - Cardiac failure [Unknown]
  - Macular degeneration [Unknown]
